FAERS Safety Report 6111211-1 (Version None)
Quarter: 2009Q1

REPORT INFORMATION
  Report Type: 
  Country: None (occurrence: None)
  Receive Date: 20090309
  Receipt Date: 20090219
  Transmission Date: 20090719
  Serious: Yes (Other)
  Sender: FDA-Public Use
  Company Number: 2009S1002923

PATIENT
  Age: 25 Year
  Sex: Female

DRUGS (3)
  1. LAMOTRIGINE [Suspect]
     Indication: EPILEPSY
     Dosage: 100 MG;
     Dates: start: 19940101
  2. GABAPENTIN [Concomitant]
  3. SERTRALIN /01011401/ (SERTRALINE) [Concomitant]

REACTIONS (1)
  - MYOCLONUS [None]
